FAERS Safety Report 17195594 (Version 1)
Quarter: 2019Q4

REPORT INFORMATION
  Report Type: Spontaneous
  Country: US (occurrence: US)
  Receive Date: 20191224
  Receipt Date: 20191224
  Transmission Date: 20200122
  Serious: No
  Sender: FDA-Public Use
  Company Number: US-009507513-1912USA010503

PATIENT
  Sex: Male

DRUGS (3)
  1. CORTICOSTEROIDS (UNSPECIFIED) [Suspect]
     Active Substance: UNSPECIFIED INGREDIENT
     Indication: ECZEMA
     Dosage: UNK
     Dates: start: 2019
  2. EUCRISA [Suspect]
     Active Substance: CRISABOROLE
     Indication: ECZEMA
     Dosage: UNK, TWICE A DAY
     Dates: start: 2019
  3. NASONEX [Suspect]
     Active Substance: MOMETASONE FUROATE
     Indication: ECZEMA
     Dosage: UNK, THREE EVENINGS A WEEK
     Dates: start: 2019

REACTIONS (2)
  - Skin disorder [Unknown]
  - Skin atrophy [Unknown]

NARRATIVE: CASE EVENT DATE: 2019
